FAERS Safety Report 21582030 (Version 2)
Quarter: 2022Q4

REPORT INFORMATION
  Report Type: Spontaneous
  Country: NO (occurrence: None)
  Receive Date: 20221111
  Receipt Date: 20221124
  Transmission Date: 20230113
  Serious: Yes (Other)
  Sender: FDA-Public Use
  Company Number: NO-ROCHE-3216102

PATIENT
  Sex: Female

DRUGS (11)
  1. RITUXIMAB [Suspect]
     Active Substance: RITUXIMAB
     Indication: Diffuse large B-cell lymphoma
     Dosage: FIRST LINE SYSTEMIC TREATMENT, R-CHOP, COMPLETE REMISSION
     Route: 065
     Dates: start: 20190205, end: 20190509
  2. RITUXIMAB [Suspect]
     Active Substance: RITUXIMAB
     Dosage: SECOND LINE SYSTEMIC TREATMENT, R-IME, NO RESPONSE/STABLE DISEASE
     Route: 065
     Dates: start: 20200708, end: 20201020
  3. RITUXIMAB [Suspect]
     Active Substance: RITUXIMAB
     Dosage: THIRD LINE SYSTEMIC TREATMENT, RITUXIMAB, POLATUZUMAB, BENDAMUSTINE, PARTIAL RESPONSE
     Route: 065
     Dates: start: 20210623, end: 20211019
  4. RITUXIMAB [Suspect]
     Active Substance: RITUXIMAB
     Dosage: FOURTH LINE SYSTEMIC TREATMENT, R-GEMOX, PARTIAL RESPONSE
     Route: 065
     Dates: start: 20220408, end: 20220701
  5. POLIVY [Suspect]
     Active Substance: POLATUZUMAB VEDOTIN-PIIQ
     Indication: Diffuse large B-cell lymphoma
     Dosage: THIRD LINE SYSTEMIC TREATMENT, RITUXIMAB, POLATUZUMAB, BENDAMUSTINE, PARTIAL RESPONSE
     Route: 065
     Dates: start: 20210623, end: 20211019
  6. CYCLOPHOSPHAMIDE\DOXORUBICIN\PREDNISONE\VINCRISTINE [Suspect]
     Active Substance: CYCLOPHOSPHAMIDE\DOXORUBICIN\PREDNISONE\VINCRISTINE
     Indication: Diffuse large B-cell lymphoma
     Dosage: FIRST LINE SYSTEMIC TREATMENT, R-CHOP, COMPLETE REMISSION
     Route: 065
     Dates: start: 20190205, end: 20190509
  7. IFOSFAMIDE [Suspect]
     Active Substance: IFOSFAMIDE
     Indication: Diffuse large B-cell lymphoma
     Dosage: SECOND LINE SYSTEMIC TREATMENT, R-IME, NO RESPONSE/STABLE DISEASE
     Route: 065
     Dates: start: 20200708, end: 20201020
  8. METHOTREXATE [Suspect]
     Active Substance: METHOTREXATE
     Indication: Diffuse large B-cell lymphoma
     Dosage: SECOND LINE SYSTEMIC TREATMENT, R-IME, NO RESPONSE/STABLE DISEASE
     Route: 065
     Dates: start: 20200708, end: 20201020
  9. ETOPOSIDE [Suspect]
     Active Substance: ETOPOSIDE
     Indication: Diffuse large B-cell lymphoma
     Dosage: SECOND LINE SYSTEMIC TREATMENT, R-IME, NO RESPONSE/STABLE DISEASE
     Route: 065
     Dates: start: 20200708, end: 20201020
  10. BENDAMUSTINE [Suspect]
     Active Substance: BENDAMUSTINE
     Indication: Diffuse large B-cell lymphoma
     Dosage: THIRD LINE SYSTEMIC TREATMENT, RITUXIMAB, POLATUZUMAB, BENDAMUSTINE, PARTIAL RESPONSE
     Route: 065
     Dates: start: 20210623, end: 20211019
  11. GEMCITABINE HYDROCHLORIDE\OXALIPLATIN [Suspect]
     Active Substance: GEMCITABINE HYDROCHLORIDE\OXALIPLATIN
     Indication: Diffuse large B-cell lymphoma
     Dosage: FOURTH LINE SYSTEMIC TREATMENT, R-GEMOX, PARTIAL RESPONSE
     Route: 065
     Dates: start: 20220408, end: 20220701

REACTIONS (5)
  - Disease progression [Unknown]
  - Diffuse large B-cell lymphoma [Unknown]
  - Blood lactate dehydrogenase increased [Unknown]
  - Off label use [Unknown]
  - Platelet count decreased [Unknown]
